FAERS Safety Report 10908331 (Version 4)
Quarter: 2015Q3

REPORT INFORMATION
  Report Type: Report from Study
  Country: US (occurrence: US)
  Receive Date: 20150312
  Receipt Date: 20150724
  Transmission Date: 20151125
  Serious: Yes (Hospitalization, Other)
  Sender: FDA-Public Use
  Company Number: US-ABBVIE-15K-163-1357969-00

PATIENT
  Age: 56 Year
  Sex: Female
  Weight: 98.06 kg

DRUGS (6)
  1. HUMIRA [Suspect]
     Active Substance: ADALIMUMAB
     Dosage: 2 WEEKS AFTER 80MG DOSE
     Route: 058
     Dates: start: 20150126, end: 20150228
  2. HUMIRA [Suspect]
     Active Substance: ADALIMUMAB
     Route: 058
     Dates: start: 20150523, end: 20150623
  3. LOVENOX [Concomitant]
     Active Substance: ENOXAPARIN SODIUM
     Indication: THROMBOSIS PROPHYLAXIS
     Dates: start: 201503, end: 201504
  4. ATIVAN [Concomitant]
     Active Substance: LORAZEPAM
     Indication: ANXIETY
  5. HUMIRA [Suspect]
     Active Substance: ADALIMUMAB
     Indication: CROHN^S DISEASE
     Dosage: LOADING DOSE
     Route: 058
     Dates: start: 20141229, end: 20141229
  6. HUMIRA [Suspect]
     Active Substance: ADALIMUMAB
     Dosage: LOADING DOSE 2 WEEKS AFTER 160 MG DOSE
     Route: 058
     Dates: start: 20150112, end: 20150112

REACTIONS (8)
  - Gastrointestinal stoma complication [Recovered/Resolved]
  - Incision site pain [Recovering/Resolving]
  - Intestinal obstruction [Recovered/Resolved]
  - Chills [Recovered/Resolved]
  - Stoma site pain [Unknown]
  - Constipation [Recovered/Resolved]
  - Drug ineffective [Recovered/Resolved]
  - Large intestinal obstruction [Recovered/Resolved]

NARRATIVE: CASE EVENT DATE: 20141229
